FAERS Safety Report 5013709-6 (Version None)
Quarter: 2006Q2

REPORT INFORMATION
  Report Type: 
  Country: None (occurrence: None)
  Receive Date: 20060525
  Receipt Date: 20060516
  Transmission Date: 20061013
  Serious: Yes (Death, Hospitalization)
  Sender: FDA-Public Use
  Company Number: 163-20785-06030375

PATIENT
  Age: 70 Year
  Sex: Female

DRUGS (2)
  1. THALOMID [Suspect]
     Indication: MULTIPLE MYELOMA
     Dosage: 50 - 150 MG, QD, ORAL
     Route: 048
     Dates: start: 20031013, end: 20040826
  2. ZOMETA [Suspect]
     Dosage: 4 MG, MONTHLY, INTRAVENOUS
     Route: 042
     Dates: end: 20040429

REACTIONS (5)
  - BLOOD CREATININE INCREASED [None]
  - KYPHOSIS [None]
  - MALIGNANT NEOPLASM PROGRESSION [None]
  - MULTIPLE MYELOMA [None]
  - RESPIRATORY FAILURE [None]
